FAERS Safety Report 10156226 (Version 1)
Quarter: 2014Q2

REPORT INFORMATION
  Report Type: Report from Study
  Country: FR (occurrence: FR)
  Receive Date: 20140507
  Receipt Date: 20140507
  Transmission Date: 20141212
  Serious: Yes (Hospitalization, Other)
  Sender: FDA-Public Use
  Company Number: FR-ROCHE-1390531

PATIENT
  Sex: Female

DRUGS (10)
  1. RITUXIMAB [Suspect]
     Indication: RHEUMATOID ARTHRITIS
     Dosage: DAY 1
     Route: 041
     Dates: start: 20081021
  2. RITUXIMAB [Suspect]
     Dosage: DAY 15
     Route: 041
     Dates: start: 20081107
  3. RITUXIMAB [Suspect]
     Dosage: DAY 1
     Route: 041
     Dates: start: 20090723
  4. RITUXIMAB [Suspect]
     Dosage: DAY 15
     Route: 041
     Dates: start: 20090811
  5. PARACETAMOL [Concomitant]
  6. CORTANCYL [Concomitant]
     Route: 065
  7. CORTANCYL [Concomitant]
     Route: 065
  8. METHOTREXATE [Concomitant]
     Route: 065
  9. METHYLPREDNISOLONE [Concomitant]
     Route: 065
  10. ROACTEMRA [Concomitant]
     Route: 065

REACTIONS (29)
  - Rectal haemorrhage [Not Recovered/Not Resolved]
  - Thyroid neoplasm [Not Recovered/Not Resolved]
  - Paraesthesia [Unknown]
  - Dyspnoea [Unknown]
  - Odynophagia [Not Recovered/Not Resolved]
  - Deafness unilateral [Unknown]
  - Myocardial ischaemia [Unknown]
  - Hip arthroplasty [Recovered/Resolved]
  - Leukocyturia [Unknown]
  - Influenza like illness [Unknown]
  - Skin maceration [Unknown]
  - General physical condition abnormal [Unknown]
  - Arthritis [Unknown]
  - Pyelonephritis [Recovered/Resolved]
  - Generalised erythema [Recovered/Resolved]
  - Infusion related reaction [Recovered/Resolved]
  - Renal colic [Not Recovered/Not Resolved]
  - Infusion related reaction [Recovered/Resolved]
  - Conjunctival hyperaemia [Not Recovered/Not Resolved]
  - Bone fissure [Not Recovered/Not Resolved]
  - Bradycardia [Recovered/Resolved]
  - Eyelid ptosis [Not Recovered/Not Resolved]
  - Diplopia [Not Recovered/Not Resolved]
  - Vocal cord paresis [Not Recovered/Not Resolved]
  - Influenza like illness [Recovered/Resolved]
  - Vitreous floaters [Recovered/Resolved]
  - Gastroenteritis [Recovered/Resolved]
  - Erysipelas [Recovered/Resolved]
  - Nephrolithiasis [Not Recovered/Not Resolved]
